FAERS Safety Report 21808765 (Version 3)
Quarter: 2023Q1

REPORT INFORMATION
  Report Type: Spontaneous
  Country: US (occurrence: None)
  Receive Date: 20230103
  Receipt Date: 20230203
  Transmission Date: 20230417
  Serious: No
  Sender: FDA-Public Use
  Company Number: 2022A412574

PATIENT

DRUGS (1)
  1. BUDESONIDE\FORMOTEROL\GLYCOPYRRONIUM [Suspect]
     Active Substance: BUDESONIDE\FORMOTEROL\GLYCOPYRRONIUM
     Dosage: 160MG 9 MG PER INHALATION,TWO TIMES A DAY
     Route: 055
     Dates: start: 20221201

REACTIONS (6)
  - Chronic obstructive pulmonary disease [Unknown]
  - Emphysema [Unknown]
  - Malaise [Unknown]
  - Off label use [Unknown]
  - Wrong technique in device usage process [Unknown]
  - Drug ineffective [Unknown]
